FAERS Safety Report 12645201 (Version 5)
Quarter: 2016Q4

REPORT INFORMATION
  Report Type: Report from Study
  Country: DE (occurrence: DE)
  Receive Date: 20160811
  Receipt Date: 20161114
  Transmission Date: 20170207
  Serious: Yes (Hospitalization, Other)
  Sender: FDA-Public Use
  Company Number: PHHY2016DE098970

PATIENT
  Sex: Male
  Weight: 84.7 kg

DRUGS (11)
  1. EXJADE [Suspect]
     Active Substance: DEFERASIROX
     Dosage: 20 MG/KG, QD (4 TABLETS OF 500 MG)
     Route: 048
     Dates: start: 20160302, end: 20160502
  2. AMOXI [Concomitant]
     Active Substance: AMOXICILLIN
     Indication: PRODUCT USED FOR UNKNOWN INDICATION
     Dosage: 1000 MG, BID
     Route: 065
     Dates: start: 20160226, end: 20160301
  3. EXJADE [Suspect]
     Active Substance: DEFERASIROX
     Indication: MYELOPROLIFERATIVE NEOPLASM
     Dosage: 500 MG, QID (20 MG PER KG BODY WEIGHT)
     Route: 048
     Dates: start: 20150928, end: 20160225
  4. EXJADE [Suspect]
     Active Substance: DEFERASIROX
     Dosage: 20 MG/KG, QD (4 TABLETS OF 500 MG)
     Route: 048
     Dates: start: 20160510, end: 20160510
  5. PANTOPRAZOL [Concomitant]
     Active Substance: PANTOPRAZOLE SODIUM
     Indication: PRODUCT USED FOR UNKNOWN INDICATION
     Route: 065
  6. BISOPROLOL [Concomitant]
     Active Substance: BISOPROLOL
     Indication: PRODUCT USED FOR UNKNOWN INDICATION
     Dosage: 10 MG, BID
     Route: 065
  7. EXJADE [Suspect]
     Active Substance: DEFERASIROX
     Dosage: 10 MG/KG, QD (2 TABLETS OF 500 MG)
     Route: 048
     Dates: start: 20160511, end: 20160714
  8. EXJADE [Suspect]
     Active Substance: DEFERASIROX
     Dosage: 10 MG/KG, QD (2 TABLETS OF 500 MG)
     Route: 048
     Dates: start: 20160920
  9. JAKAVI [Suspect]
     Active Substance: RUXOLITINIB
     Indication: MYELOPROLIFERATIVE NEOPLASM
     Dosage: 15 MG, UNK
     Route: 048
  10. AMLODIPINE [Concomitant]
     Active Substance: AMLODIPINE BESYLATE
     Indication: PRODUCT USED FOR UNKNOWN INDICATION
     Route: 065
  11. MCP [Concomitant]
     Active Substance: METOCLOPRAMIDE HYDROCHLORIDE
     Indication: PRODUCT USED FOR UNKNOWN INDICATION
     Dosage: 20 DRP, PRN (20 DROPS ON DEMAND)
     Route: 065
     Dates: start: 20151225

REACTIONS (8)
  - Abscess [Recovered/Resolved]
  - Swelling [Unknown]
  - Erythema [Unknown]
  - Mass [Unknown]
  - Peripheral swelling [Unknown]
  - Pain [Unknown]
  - Hyperthermia [Unknown]
  - Haematoma infection [Unknown]

NARRATIVE: CASE EVENT DATE: 20160627
